FAERS Safety Report 4427930-9 (Version None)
Quarter: 2004Q3

REPORT INFORMATION
  Report Type: 
  Country: None (occurrence: None)
  Receive Date: 20040726
  Receipt Date: 20040326
  Transmission Date: 20050211
  Serious: No
  Sender: FDA-Public Use
  Company Number: USA040362566

PATIENT
  Age: 77 Year
  Sex: Female
  Weight: 52 kg

DRUGS (3)
  1. FORTEO [Suspect]
     Indication: OSTEOPOROSIS
     Dosage: 20 UG/1 DAY
     Dates: start: 20040301, end: 20040315
  2. FOSAMAX [Concomitant]
  3. CREON [Concomitant]

REACTIONS (1)
  - MUSCLE SPASMS [None]
